FAERS Safety Report 9069011 (Version 4)
Quarter: 2013Q4

REPORT INFORMATION
  Report Type: Spontaneous
  Country: JP (occurrence: JP)
  Receive Date: 20130215
  Receipt Date: 20131224
  Transmission Date: 20140711
  Serious: Yes (Disabling)
  Sender: FDA-Public Use
  Company Number: JP-AMGEN-JPNSP2013010714

PATIENT
  Age: 72 Year
  Sex: Male
  Weight: 74 kg

DRUGS (7)
  1. RANMARK [Suspect]
     Indication: METASTASES TO BONE
     Dosage: UNK
     Route: 058
     Dates: start: 20121101, end: 20121129
  2. DECADRON                           /00016001/ [Concomitant]
     Indication: PROSTATE CANCER
     Dosage: 1 MG, QD/ 6.6 MG
     Route: 048
     Dates: start: 20121026, end: 20121210
  3. KYTRIL [Concomitant]
     Dosage: 3 MG, QD
     Route: 042
     Dates: start: 20110124
  4. POLARAMINE [Concomitant]
     Dosage: 5 MG, QD
     Route: 042
     Dates: start: 20110124
  5. GASTER                             /00661201/ [Concomitant]
     Dosage: 20 MG, QD
     Route: 042
     Dates: start: 20110124
  6. ONETAXOTERE [Concomitant]
     Dosage: 80 MG, QD/60 MG
     Route: 042
     Dates: start: 20120123
  7. ZOMETA [Concomitant]
     Dosage: 4 MG, QD
     Route: 041
     Dates: start: 20100611, end: 20121101

REACTIONS (1)
  - Osteonecrosis of jaw [Recovering/Resolving]
